FAERS Safety Report 8052814-7 (Version None)
Quarter: 2012Q1

REPORT INFORMATION
  Report Type: 
  Country: None (occurrence: None)
  Receive Date: 20120118
  Receipt Date: 20120113
  Transmission Date: 20120608
  Serious: Yes (Other)
  Sender: FDA-Public Use
  Company Number: PHHY2012SK003826

PATIENT
  Age: 62 Year
  Sex: Male

DRUGS (1)
  1. AFINITOR [Suspect]
     Dosage: UNK UKN, UNK
     Route: 048

REACTIONS (3)
  - CARDIOVASCULAR DISORDER [None]
  - FATIGUE [None]
  - DIARRHOEA [None]
